FAERS Safety Report 8525342-X (Version None)
Quarter: 2012Q3

REPORT INFORMATION
  Report Type: 
  Country: None (occurrence: None)
  Receive Date: 20120720
  Receipt Date: 20120711
  Transmission Date: 20120928
  Serious: Yes (Hospitalization)
  Sender: FDA-Public Use
  Company Number: DE-VERTEX PHARMACEUTICALS INC.-000000000000001175

PATIENT
  Age: 61 Year
  Sex: Male

DRUGS (2)
  1. INTERFERON ALFA-2A [Concomitant]
     Indication: HEPATITIS C
     Dosage: DOSAGE FORM: INJECTION
     Route: 058
     Dates: start: 20111021, end: 20120209
  2. TELAPREVIR [Suspect]
     Indication: HEPATITIS C
     Dosage: DOSAGE FORM: TABLET
     Route: 048
     Dates: start: 20111021, end: 20120113

REACTIONS (4)
  - BLOOD PRODUCT TRANSFUSION DEPENDENT [None]
  - PANCYTOPENIA [None]
  - LEUKOPENIA [None]
  - THROMBOCYTOPENIA [None]
